FAERS Safety Report 15124021 (Version 1)
Quarter: 2018Q3

REPORT INFORMATION
  Report Type: Report from Study
  Country: JP (occurrence: JP)
  Receive Date: 20180710
  Receipt Date: 20180710
  Transmission Date: 20181010
  Serious: Yes (Hospitalization)
  Sender: FDA-Public Use
  Company Number: JP-BIOVERATIV-2018BV000379

PATIENT
  Age: 45 Year
  Sex: Male
  Weight: 49 kg

DRUGS (15)
  1. PREZISTANAIVE [Concomitant]
     Active Substance: DARUNAVIR
     Indication: HIV INFECTION
     Route: 065
     Dates: start: 20151105, end: 20171105
  2. ALPROLIX [Suspect]
     Active Substance: EFTRENONACOG ALFA
     Indication: FACTOR IX DEFICIENCY
     Dosage: ROUTINE TREATMENT
     Route: 042
     Dates: start: 20151105, end: 20171105
  3. EPZICOM [Concomitant]
     Active Substance: ABACAVIR SULFATE\LAMIVUDINE
     Indication: HIV INFECTION
     Route: 065
     Dates: start: 20151105, end: 20171105
  4. BIOFERMIN [Concomitant]
     Active Substance: BACILLUS SUBTILIS\LACTOBACILLUS ACIDOPHILUS\STREPTOCOCCUS FAECAIS
     Indication: GASTROINTESTINAL DISORDER
     Route: 065
     Dates: start: 20151105, end: 20171105
  5. DAIKENCHUTO [Concomitant]
     Active Substance: HERBALS
     Indication: GASTROINTESTINAL DISORDER
     Route: 065
     Dates: start: 20160707, end: 20171105
  6. LIVACT [Concomitant]
     Active Substance: AMINO ACIDS
     Indication: HEPATIC ENCEPHALOPATHY
     Route: 065
     Dates: start: 20151105, end: 20171105
  7. PIARLE [Concomitant]
     Indication: HEPATIC ENCEPHALOPATHY
     Route: 065
     Dates: start: 20151105, end: 20171105
  8. NORVIR [Concomitant]
     Active Substance: RITONAVIR
     Indication: HIV INFECTION
     Route: 065
     Dates: start: 20151105, end: 20151105
  9. ISENTRESS [Concomitant]
     Active Substance: RALTEGRAVIR POTASSIUM
     Indication: HIV INFECTION
     Route: 065
     Dates: start: 20151105, end: 20171105
  10. TOPINA [Concomitant]
     Active Substance: TOPIRAMATE
     Indication: EPILEPSY
     Route: 065
     Dates: start: 20151105, end: 20171105
  11. THYRADIN S [Concomitant]
     Active Substance: LEVOTHYROXINE SODIUM
     Indication: HYPOTHYROIDISM
     Route: 065
     Dates: start: 20151105, end: 20171105
  12. ALEVIATIN [Concomitant]
     Active Substance: PHENYTOIN SODIUM
     Indication: EPILEPSY
     Route: 065
     Dates: start: 20151105, end: 20171105
  13. LANSOPRAZOLE. [Concomitant]
     Active Substance: LANSOPRAZOLE
     Indication: GASTROINTESTINAL DISORDER
     Route: 065
     Dates: start: 20160928, end: 20171105
  14. SAMTIREL [Concomitant]
     Active Substance: ATOVAQUONE
     Indication: HIV INFECTION
     Route: 065
     Dates: start: 20151105, end: 20171105
  15. MAGMITT [Concomitant]
     Active Substance: MAGNESIUM OXIDE
     Indication: GASTROINTESTINAL DISORDER
     Route: 065
     Dates: start: 20160720, end: 20171105

REACTIONS (2)
  - Hepatic cirrhosis [Recovered/Resolved]
  - Hepatic encephalopathy [Recovered/Resolved]

NARRATIVE: CASE EVENT DATE: 20160630
